FAERS Safety Report 21349525 (Version 1)
Quarter: 2022Q3

REPORT INFORMATION
  Report Type: Spontaneous
  Country: US (occurrence: None)
  Receive Date: 20220916
  Receipt Date: 20220916
  Transmission Date: 20221027
  Serious: Yes (Other)
  Sender: FDA-Public Use
  Company Number: None

PATIENT
  Age: 86 Year
  Sex: Male
  Weight: 84.4 kg

DRUGS (12)
  1. ABIRATERONE [Suspect]
     Active Substance: ABIRATERONE
     Indication: Prostate cancer
     Dosage: FREQUENCY : DAILY;?
     Route: 048
     Dates: start: 20220809, end: 20220815
  2. TYLENOL [Concomitant]
     Active Substance: ACETAMINOPHEN
  3. CALCITRIOL [Concomitant]
     Active Substance: CALCITRIOL
  4. CYANOCOBALAMIN [Concomitant]
     Active Substance: CYANOCOBALAMIN
  5. DOCUSATE [Concomitant]
     Active Substance: DOCUSATE
  6. FAMOTIDINE [Concomitant]
     Active Substance: FAMOTIDINE
  7. FELODIPINE [Concomitant]
     Active Substance: FELODIPINE
  8. LEUPROLIDE [Concomitant]
     Active Substance: LEUPROLIDE
  9. LIVALO [Concomitant]
     Active Substance: PITAVASTATIN CALCIUM
  10. MELATONIN [Concomitant]
     Active Substance: MELATONIN
  11. METAMUCIL [Concomitant]
     Active Substance: PLANTAGO SEED
  12. TUMS [Concomitant]
     Active Substance: CALCIUM CARBONATE

REACTIONS (2)
  - Blood pressure increased [None]
  - Dyspnoea [None]

NARRATIVE: CASE EVENT DATE: 20220815
